FAERS Safety Report 6360753-2 (Version None)
Quarter: 2009Q3

REPORT INFORMATION
  Report Type: 
  Country: None (occurrence: None)
  Receive Date: 20090918
  Receipt Date: 20090911
  Transmission Date: 20100115
  Serious: Yes (Other)
  Sender: FDA-Public Use
  Company Number: US-JNJFOC-20090903947

PATIENT
  Age: 34 Year
  Sex: Male

DRUGS (10)
  1. HALOPERIDOL [Suspect]
     Indication: ALCOHOL WITHDRAWAL SYNDROME
     Route: 030
  2. LORAZEPAM [Concomitant]
     Route: 042
  3. LORAZEPAM [Concomitant]
     Indication: ALCOHOL WITHDRAWAL SYNDROME
     Route: 042
  4. LORAZEPAM [Concomitant]
     Indication: AGITATION
     Route: 048
  5. QUETIAPINE FUMARATE [Concomitant]
     Indication: AGITATION
     Dosage: 100 MG IN MORNING, 100 MG AT NOON AND 200 MG NIGHTLY
     Route: 048
  6. VALPROIC ACID [Concomitant]
     Route: 065
  7. CLONIDINE [Concomitant]
     Indication: HYPERTENSION
     Route: 065
  8. MULTI-VITAMINS [Concomitant]
     Route: 065
  9. THIAMINE HCL [Concomitant]
     Route: 065
  10. FOLATE [Concomitant]
     Route: 065

REACTIONS (2)
  - BLOOD CREATINE PHOSPHOKINASE INCREASED [None]
  - ELECTROCARDIOGRAM QT PROLONGED [None]
